FAERS Safety Report 21822231 (Version 1)
Quarter: 2023Q1

REPORT INFORMATION
  Report Type: Spontaneous
  Country: BR (occurrence: BR)
  Receive Date: 20230105
  Receipt Date: 20230105
  Transmission Date: 20230418
  Serious: Yes (Other)
  Sender: FDA-Public Use
  Company Number: BR-ORGANON-O2212BRA002126

PATIENT
  Age: 83 Year
  Sex: Female

DRUGS (4)
  1. REMERON SOLTAB [Suspect]
     Active Substance: MIRTAZAPINE
     Indication: Anxiety
     Dosage: 1 TABLET AT NIGHT, CONTINUOUS USE)
     Route: 048
  2. REMERON SOLTAB [Suspect]
     Active Substance: MIRTAZAPINE
     Indication: Panic attack
  3. MIRTAZAPINE [Suspect]
     Active Substance: MIRTAZAPINE
     Indication: Anxiety
     Dosage: UNK
  4. MIRTAZAPINE [Suspect]
     Active Substance: MIRTAZAPINE
     Indication: Panic attack

REACTIONS (5)
  - Diabetic metabolic decompensation [Unknown]
  - Emotional distress [Unknown]
  - Nervousness [Not Recovered/Not Resolved]
  - Agitation [Not Recovered/Not Resolved]
  - Dizziness [Unknown]
